FAERS Safety Report 12154598 (Version 1)
Quarter: 2016Q1

REPORT INFORMATION
  Report Type: Spontaneous
  Country: FR (occurrence: FR)
  Receive Date: 20160307
  Receipt Date: 20160307
  Transmission Date: 20160526
  Serious: Yes (Hospitalization)
  Sender: FDA-Public Use
  Company Number: FR-CELGENE-FRA-2016025698

PATIENT
  Age: 65 Year
  Sex: Male

DRUGS (12)
  1. CALCIPARINE [Concomitant]
     Active Substance: HEPARIN CALCIUM
     Indication: PRODUCT USED FOR UNKNOWN INDICATION
     Route: 058
  2. REVLIMID [Suspect]
     Active Substance: LENALIDOMIDE
     Indication: PLASMA CELL MYELOMA
     Route: 048
     Dates: start: 20150129
  3. NEODEX [Suspect]
     Active Substance: DEXAMETHASONE\NEOMYCIN
     Indication: PLASMA CELL MYELOMA
     Route: 048
     Dates: start: 20150129
  4. ZOMETA [Concomitant]
     Active Substance: ZOLEDRONIC ACID
     Indication: PRODUCT USED FOR UNKNOWN INDICATION
     Route: 041
  5. REVLIMID [Suspect]
     Active Substance: LENALIDOMIDE
     Route: 048
     Dates: start: 20150603, end: 20150729
  6. NEODEX [Suspect]
     Active Substance: DEXAMETHASONE\NEOMYCIN
     Dosage: .4286 TABLET
     Route: 048
     Dates: start: 20150603, end: 20150729
  7. ZELITREX [Concomitant]
     Active Substance: VALACYCLOVIR HYDROCHLORIDE
     Indication: PRODUCT USED FOR UNKNOWN INDICATION
     Route: 048
     Dates: start: 201501
  8. REVLIMID [Suspect]
     Active Substance: LENALIDOMIDE
     Route: 048
  9. VELCADE [Suspect]
     Active Substance: BORTEZOMIB
     Route: 041
     Dates: start: 20150603, end: 20150729
  10. NEODEX [Suspect]
     Active Substance: DEXAMETHASONE\NEOMYCIN
     Route: 048
  11. BACTRIM [Concomitant]
     Active Substance: SULFAMETHOXAZOLE\TRIMETHOPRIM
     Indication: INFECTION PROPHYLAXIS
     Route: 048
     Dates: start: 201601
  12. VELCADE [Suspect]
     Active Substance: BORTEZOMIB
     Indication: PLASMA CELL MYELOMA
     Route: 041
     Dates: start: 20150129

REACTIONS (2)
  - Capillary leak syndrome [Recovered/Resolved]
  - Hypoalbuminaemia [Recovered/Resolved]

NARRATIVE: CASE EVENT DATE: 20150715
